FAERS Safety Report 14248100 (Version 3)
Quarter: 2018Q1

REPORT INFORMATION
  Report Type: Spontaneous
  Country: TW (occurrence: TW)
  Receive Date: 20171204
  Receipt Date: 20180227
  Transmission Date: 20180508
  Serious: Yes (Hospitalization, Other)
  Sender: FDA-Public Use
  Company Number: TW-BRISTOL-MYERS SQUIBB COMPANY-BMS-2017-098613

PATIENT
  Age: 75 Year
  Sex: Male
  Weight: 68 kg

DRUGS (1)
  1. OPDIVO [Suspect]
     Active Substance: NIVOLUMAB
     Indication: NASOPHARYNGEAL CANCER
     Dosage: 120 MG, Q2WK
     Route: 041
     Dates: start: 20170930

REACTIONS (8)
  - Condition aggravated [Recovering/Resolving]
  - Metastases to central nervous system [Unknown]
  - Muscular weakness [Recovering/Resolving]
  - Somnolence [Recovered/Resolved]
  - Choking [Unknown]
  - Prescribed underdose [Unknown]
  - Pyrexia [Unknown]
  - Diarrhoea [Unknown]

NARRATIVE: CASE EVENT DATE: 20170930
